FAERS Safety Report 6505005-2 (Version None)
Quarter: 2009Q4

REPORT INFORMATION
  Report Type: 
  Country: None (occurrence: None)
  Receive Date: 20091218
  Receipt Date: 20091211
  Transmission Date: 20100525
  Serious: Yes (Life-Threatening, Hospitalization)
  Sender: FDA-Public Use
  Company Number: IT-JNJFOC-20090708681

PATIENT
  Age: 4 Year
  Sex: Female

DRUGS (4)
  1. PARACETAMOL [Suspect]
     Route: 065
  2. PARACETAMOL [Suspect]
     Indication: PYREXIA
     Dosage: 125 MG/6 HOURS FOR 3 DAYS IN THE STANDARD MANNER
     Route: 065
  3. CEFTRIAXONE [Concomitant]
     Route: 065
  4. BARBITURATES [Concomitant]
     Indication: EPILEPSY
     Route: 065

REACTIONS (7)
  - CYANOSIS [None]
  - HAEMATEMESIS [None]
  - HEPATIC FAILURE [None]
  - HYPERVENTILATION [None]
  - LIVER FUNCTION TEST ABNORMAL [None]
  - LUNG DISORDER [None]
  - TACHYCARDIA [None]
